FAERS Safety Report 7530773-0 (Version None)
Quarter: 2011Q2

REPORT INFORMATION
  Report Type: 
  Country: None (occurrence: None)
  Receive Date: 20110607
  Receipt Date: 20110602
  Transmission Date: 20111010
  Serious: Yes (Other)
  Sender: FDA-Public Use
  Company Number: GB-MERCK-1106GBR00009

PATIENT
  Age: 32 Year
  Sex: Male
  Weight: 82 kg

DRUGS (5)
  1. COZAAR [Suspect]
     Indication: HYPERTENSION
     Route: 048
     Dates: start: 20100813, end: 20101109
  2. ALBUTEROL [Concomitant]
     Route: 055
  3. BECLOMETHASONE DIPROPIONATE [Concomitant]
     Route: 055
  4. CARBAMAZEPINE [Concomitant]
     Route: 065
  5. CARBAMAZEPINE [Concomitant]
     Route: 065

REACTIONS (1)
  - CONVULSION [None]
